FAERS Safety Report 9846050 (Version 1)
Quarter: 2013Q4

REPORT INFORMATION
  Report Type: Spontaneous
  Country: US (occurrence: None)
  Receive Date: 20131223
  Receipt Date: 20131223
  Transmission Date: 20140711
  Serious: Yes (Other)
  Sender: FDA-Public Use
  Company Number: SYM-2013-02321

PATIENT
  Sex: Female

DRUGS (9)
  1. XENAZINE [Suspect]
     Indication: DYSKINESIA
     Dosage: 75 MG, 3 IN 1 D, ORAL
     Route: 048
     Dates: end: 20130325
  2. CLONAZEPAM  (CLONAZEPAM) (CLONAZEPAM) [Concomitant]
  3. CITALOPRAM (CITALOPRAM) (CITALOPRAM)? [Concomitant]
  4. AMBIEN (ZOLPIDEM TARTRATE) (ZOLPIDEM TARTRATE) [Concomitant]
  5. NORCO (VICODIN) (PARACETAMOL, HYDROCODONE BITARTRATE)? [Concomitant]
  6. BENAZEPRIL (BENAZEPRIL) (BENAZEPRIL)? [Concomitant]
  7. VERAPAMIL (VERAPAMIL) (VERAPAMIL)? [Concomitant]
  8. HYDROXYZINE (HYDROXYZINE) (HYDROXYZINE) [Concomitant]
  9. HYDROCHLOROTHIAZIDE (HYDROCHLOROTHIAZIDE) (HYDROCHLOROTHIAZIDE)? [Concomitant]

REACTIONS (2)
  - Depression [None]
  - Suicidal ideation [None]
